FAERS Safety Report 8322953-1 (Version None)
Quarter: 2012Q2

REPORT INFORMATION
  Report Type: 
  Country: None (occurrence: None)
  Receive Date: 20120430
  Receipt Date: 20120419
  Transmission Date: 20120825
  Serious: Yes (Hospitalization, Other)
  Sender: FDA-Public Use
  Company Number: US-ACTELION-A-US2011-58413

PATIENT

DRUGS (2)
  1. TRACLEER [Suspect]
     Indication: PULMONARY ARTERIAL HYPERTENSION
     Dosage: UNK
     Route: 048
     Dates: start: 20030620
  2. COUMADIN [Concomitant]

REACTIONS (7)
  - BLOOD COUNT ABNORMAL [None]
  - FALL [None]
  - COLONOSCOPY [None]
  - RECTAL HAEMORRHAGE [None]
  - WEIGHT INCREASED [None]
  - ANKLE FRACTURE [None]
  - COAGULOPATHY [None]
